FAERS Safety Report 8379631-2 (Version None)
Quarter: 2012Q2

REPORT INFORMATION
  Report Type: 
  Country: None (occurrence: None)
  Receive Date: 20120523
  Receipt Date: 20120517
  Transmission Date: 20120825
  Serious: Yes (Other)
  Sender: FDA-Public Use
  Company Number: US-BAYER-2011-120729

PATIENT
  Age: 38 Year
  Sex: Female
  Weight: 117.91 kg

DRUGS (12)
  1. YASMIN [Suspect]
     Indication: PREMENSTRUAL SYNDROME
     Dosage: UNK
     Dates: start: 20010101, end: 20060101
  2. IRON SUPPLEMENT [Concomitant]
  3. PROPOXYPHENE NAPSYLATE W/ ACETAMINOPHEN [Concomitant]
     Dosage: 100 MG, UNK
     Route: 048
     Dates: start: 20060411
  4. LUPRON [Concomitant]
     Indication: UTERINE LEIOMYOMA
     Dosage: UNK
     Dates: start: 20060419
  5. OVCON-35 [Concomitant]
     Indication: METRORRHAGIA
     Dosage: UNK
     Dates: start: 20050208
  6. INDERAL LA [Concomitant]
     Indication: MIGRAINE
     Dosage: 80 MG, UNK
     Route: 048
     Dates: start: 20060407
  7. NSAID'S [Concomitant]
     Route: 048
  8. INDERAL LA [Concomitant]
     Dosage: 80 MG, UNK
     Route: 048
     Dates: start: 20060510
  9. AMOXICILLIN [Concomitant]
     Dosage: 500 MG, UNK
     Route: 048
     Dates: start: 20060411
  10. TYLENOL [Concomitant]
     Indication: HEADACHE
  11. YASMIN [Suspect]
     Indication: CONTRACEPTION
  12. SANCTURA [Concomitant]
     Indication: HYPERTONIC BLADDER

REACTIONS (4)
  - ANXIETY [None]
  - PAIN [None]
  - DEEP VEIN THROMBOSIS [None]
  - EMOTIONAL DISORDER [None]
